FAERS Safety Report 25349716 (Version 1)
Quarter: 2025Q2

REPORT INFORMATION
  Report Type: Report from Study
  Country: US (occurrence: US)
  Receive Date: 20250523
  Receipt Date: 20250523
  Transmission Date: 20250716
  Serious: Yes (Hospitalization, Other)
  Sender: ABBVIE
  Company Number: US-ABBVIE-6252011

PATIENT
  Age: 62 Year
  Sex: Female

DRUGS (2)
  1. RINVOQ [Suspect]
     Active Substance: UPADACITINIB
     Indication: Psoriatic arthropathy
     Route: 048
     Dates: start: 20250101
  2. RINVOQ [Suspect]
     Active Substance: UPADACITINIB
     Indication: Psoriatic arthropathy
     Route: 048
     Dates: start: 20240401

REACTIONS (15)
  - Skin infection [Unknown]
  - Rash [Not Recovered/Not Resolved]
  - COVID-19 [Not Recovered/Not Resolved]
  - Fatigue [Not Recovered/Not Resolved]
  - Pruritus [Not Recovered/Not Resolved]
  - Pain of skin [Unknown]
  - Scratch [Unknown]
  - COVID-19 [Recovered/Resolved]
  - Psoriatic arthropathy [Recovered/Resolved]
  - Gastroenteritis viral [Not Recovered/Not Resolved]
  - COVID-19 [Recovered/Resolved]
  - Hernia [Recovered/Resolved]
  - Rectal prolapse repair [Recovered/Resolved]
  - Blood pressure abnormal [Unknown]
  - Psoriatic arthropathy [Not Recovered/Not Resolved]

NARRATIVE: CASE EVENT DATE: 20250101
